FAERS Safety Report 8476454-0 (Version None)
Quarter: 2012Q2

REPORT INFORMATION
  Report Type: 
  Country: None (occurrence: None)
  Receive Date: 20120628
  Receipt Date: 20120618
  Transmission Date: 20120825
  Serious: Yes (Other)
  Sender: FDA-Public Use
  Company Number: JP-ELI_LILLY_AND_COMPANY-JP201205005363

PATIENT
  Age: 55 Year
  Sex: Male

DRUGS (2)
  1. HUMULIN N [Suspect]
     Dosage: UNK
     Route: 058
     Dates: start: 20120509, end: 20120514
  2. HUMULIN N [Suspect]
     Indication: TYPE 2 DIABETES MELLITUS
     Dosage: UNK, BID
     Route: 058
     Dates: start: 20100101, end: 20120508

REACTIONS (2)
  - DIABETES MELLITUS INADEQUATE CONTROL [None]
  - ANTI-INSULIN ANTIBODY POSITIVE [None]
